FAERS Safety Report 7180891 (Version 2)
Quarter: 2014Q4

REPORT INFORMATION
  Report Type: Report from Study
  Country: US (occurrence: US)
  Receive Date: 20091119
  Receipt Date: 20141230
  Transmission Date: 20150529
  Serious: Yes (Other)
  Sender: FDA-Public Use
  Company Number: US-BIOGENIDEC-2009BI024635

PATIENT
  Age: 48 Year
  Sex: Male
  Weight: 88 kg

DRUGS (10)
  1. AVONEX [Suspect]
     Active Substance: INTERFERON BETA-1A
     Indication: MULTIPLE SCLEROSIS
     Route: 030
     Dates: start: 20080418, end: 20090710
  2. KEPPRA [Concomitant]
     Active Substance: LEVETIRACETAM
     Indication: COMPLEX PARTIAL SEIZURES
     Route: 048
     Dates: start: 200811, end: 200902
  3. KEPPRA [Concomitant]
     Active Substance: LEVETIRACETAM
     Indication: EPILEPSY
     Route: 048
     Dates: start: 20090511
  4. KEPPRA [Concomitant]
     Active Substance: LEVETIRACETAM
     Indication: EPILEPSY
     Route: 048
     Dates: start: 200805, end: 200811
  5. KEPPRA [Concomitant]
     Active Substance: LEVETIRACETAM
     Indication: COMPLEX PARTIAL SEIZURES
     Route: 048
     Dates: start: 20090511
  6. KEPPRA [Concomitant]
     Active Substance: LEVETIRACETAM
     Indication: EPILEPSY
     Route: 048
     Dates: start: 200811, end: 200902
  7. SAW PALMETTO [Concomitant]
     Active Substance: SAW PALMETTO
  8. KEPPRA [Concomitant]
     Active Substance: LEVETIRACETAM
     Indication: COMPLEX PARTIAL SEIZURES
     Route: 048
     Dates: start: 200805, end: 200811
  9. KEPPRA [Concomitant]
     Active Substance: LEVETIRACETAM
     Indication: EPILEPSY
     Route: 048
     Dates: start: 200902, end: 200905
  10. KEPPRA [Concomitant]
     Active Substance: LEVETIRACETAM
     Indication: COMPLEX PARTIAL SEIZURES
     Route: 048
     Dates: start: 200902, end: 200905

REACTIONS (3)
  - Multiple sclerosis relapse [Unknown]
  - Seizure [Recovered/Resolved]
  - Complex partial seizures [Recovered/Resolved]

NARRATIVE: CASE EVENT DATE: 20080514
